FAERS Safety Report 12553554 (Version 1)
Quarter: 2016Q3

REPORT INFORMATION
  Report Type: Spontaneous
  Country: FR (occurrence: FR)
  Receive Date: 20160713
  Receipt Date: 20160713
  Transmission Date: 20161109
  Serious: Yes (Hospitalization)
  Sender: FDA-Public Use
  Company Number: FR-PFIZER INC-2016335173

PATIENT
  Age: 72 Year
  Sex: Female

DRUGS (11)
  1. ZOPHREN /00955302/ [Suspect]
     Active Substance: ONDANSETRON
     Indication: PREMEDICATION
     Dosage: 8 MG, SINGLE
     Route: 040
     Dates: start: 20160608
  2. AVASTIN [Suspect]
     Active Substance: BEVACIZUMAB
     Dosage: 550 MG, SINGLE
     Route: 042
     Dates: start: 20160608
  3. FLUOROURACIL. [Concomitant]
     Active Substance: FLUOROURACIL
     Dosage: UNK
     Dates: start: 20160608
  4. IRINOTECAN HCL [Suspect]
     Active Substance: IRINOTECAN HYDROCHLORIDE
     Dosage: 29 MG, SINGLE
     Route: 042
     Dates: start: 20160608, end: 20160608
  5. CALCIUM FOLINATE [Suspect]
     Active Substance: LEUCOVORIN CALCIUM
     Indication: COLON CANCER METASTATIC
     Dosage: 14 COURSES OF FOLFIRI AND BEVACIZUMAB
     Route: 042
  6. FLUOROURACIL. [Concomitant]
     Active Substance: FLUOROURACIL
     Indication: COLORECTAL CANCER METASTATIC
     Dosage: 14 COURSES OF FOLFIRI AND BEVACIZUMAB
  7. ATROPINE. [Suspect]
     Active Substance: ATROPINE
     Indication: PREMEDICATION
     Dosage: 0.25 MG, SINGLE
     Route: 040
     Dates: start: 20160608
  8. AVASTIN [Suspect]
     Active Substance: BEVACIZUMAB
     Indication: COLORECTAL CANCER METASTATIC
     Dosage: 14 COURSES OF FOLFIRI AND BEVACIZUMAB
     Route: 042
  9. CALCIUM FOLINATE [Suspect]
     Active Substance: LEUCOVORIN CALCIUM
     Dosage: 80 MG, SINGLE
     Route: 042
     Dates: start: 20160608, end: 20160608
  10. SOLU-MEDROL [Suspect]
     Active Substance: METHYLPREDNISOLONE SODIUM SUCCINATE
     Indication: PREMEDICATION
     Dosage: 60 MG, SINGLE
     Route: 042
     Dates: start: 20160608
  11. IRINOTECAN HCL [Suspect]
     Active Substance: IRINOTECAN HYDROCHLORIDE
     Indication: COLON CANCER METASTATIC
     Dosage: 14 COURSES OF FOLFIRI AND BEVACIZUMAB
     Route: 042

REACTIONS (2)
  - Larynx irritation [Recovered/Resolved]
  - Cough [Recovered/Resolved]

NARRATIVE: CASE EVENT DATE: 20160608
